FAERS Safety Report 13797097 (Version 1)
Quarter: 2017Q3

REPORT INFORMATION
  Report Type: Spontaneous
  Country: ES (occurrence: ES)
  Receive Date: 20170727
  Receipt Date: 20170727
  Transmission Date: 20171127
  Serious: Yes (Hospitalization)
  Sender: FDA-Public Use
  Company Number: ES-LUPIN PHARMACEUTICALS INC.-2016-02886

PATIENT
  Age: 25 Year
  Sex: Male

DRUGS (3)
  1. LAMOTRIGINE. [Suspect]
     Active Substance: LAMOTRIGINE
     Dosage: 200 MG
     Route: 065
  2. LAMOTRIGINE. [Suspect]
     Active Substance: LAMOTRIGINE
     Indication: BIPOLAR I DISORDER
     Dosage: UNK UNK,UNK,
     Route: 065
  3. LITHIUM. [Concomitant]
     Active Substance: LITHIUM
     Indication: BIPOLAR I DISORDER
     Dosage: UNK UNK,UNK,UNKNOWN
     Route: 065

REACTIONS (1)
  - Drug reaction with eosinophilia and systemic symptoms [Recovered/Resolved]
